FAERS Safety Report 10163938 (Version 2)
Quarter: 2014Q2

REPORT INFORMATION
  Report Type: Spontaneous
  Country: US (occurrence: US)
  Receive Date: 20140510
  Receipt Date: 20140510
  Transmission Date: 20141212
  Serious: No
  Sender: FDA-Public Use
  Company Number: US-BRISTOL-MYERS SQUIBB COMPANY-19655737

PATIENT
  Sex: Female

DRUGS (1)
  1. BYETTA PEN DISPOSABLE [Suspect]
     Indication: BLOOD GLUCOSE
     Dosage: THERAPY STARTED WITH 5MCG/2/1/DAY AND THEN SWITCHED TO 10MCG/2/1/DAY
     Route: 058
     Dates: start: 2013

REACTIONS (2)
  - Drug ineffective [Unknown]
  - Product quality issue [Unknown]
